FAERS Safety Report 13764164 (Version 1)
Quarter: 2017Q3

REPORT INFORMATION
  Report Type: Spontaneous
  Country: CN (occurrence: CN)
  Receive Date: 20170718
  Receipt Date: 20170718
  Transmission Date: 20171127
  Serious: Yes (Other)
  Sender: FDA-Public Use
  Company Number: CN-ABBVIE-17P-035-2041718-00

PATIENT
  Age: 35 Year
  Sex: Male

DRUGS (2)
  1. DEPAKINE CHRONO [Suspect]
     Active Substance: VALPROATE SODIUM
     Dosage: EXTENDED RELEASE
     Route: 048
     Dates: start: 20170322, end: 20170322
  2. DEPAKINE CHRONO [Suspect]
     Active Substance: VALPROATE SODIUM
     Indication: EPILEPSY
     Dosage: EXTENDED RELEASE
     Route: 048
     Dates: start: 20170317

REACTIONS (4)
  - Headache [Recovering/Resolving]
  - Self-medication [Unknown]
  - Seizure [Recovering/Resolving]
  - Slow response to stimuli [Recovering/Resolving]

NARRATIVE: CASE EVENT DATE: 20170321
